FAERS Safety Report 6959387-8 (Version None)
Quarter: 2010Q3

REPORT INFORMATION
  Report Type: 
  Country: None (occurrence: None)
  Receive Date: 20100831
  Receipt Date: 20100831
  Transmission Date: 20110219
  Serious: Yes (Hospitalization)
  Sender: FDA-Public Use
  Company Number: None

PATIENT
  Age: 63 Year
  Sex: Male
  Weight: 109 kg

DRUGS (1)
  1. COLCHICINE [Suspect]
     Indication: HYPERSENSITIVITY
     Dosage: 0.6 MG EVERY DAY PO
     Route: 048
     Dates: start: 20091209, end: 20100729

REACTIONS (4)
  - HYPOTENSION [None]
  - PRURITUS [None]
  - RASH [None]
  - URTICARIA [None]
